FAERS Safety Report 16753864 (Version 1)
Quarter: 2019Q3

REPORT INFORMATION
  Report Type: Spontaneous
  Country: US (occurrence: US)
  Receive Date: 20190710
  Receipt Date: 20190710
  Transmission Date: 20191005
  Serious: Yes (Other)
  Sender: FDA-Public Use
  Company Number: None

PATIENT
  Age: 17 Year
  Sex: Female
  Weight: 160 kg

DRUGS (1)
  1. LEVOTHYROXINE 125MG [Suspect]
     Active Substance: LEVOTHYROXINE
     Dates: start: 20190319, end: 20190624

REACTIONS (2)
  - Treatment failure [None]
  - Blood thyroid stimulating hormone increased [None]
